FAERS Safety Report 7413164-2 (Version None)
Quarter: 2011Q2

REPORT INFORMATION
  Report Type: 
  Country: None (occurrence: None)
  Receive Date: 20110413
  Receipt Date: 20110406
  Transmission Date: 20111010
  Serious: Yes (Death)
  Sender: FDA-Public Use
  Company Number: IT-BRISTOL-MYERS SQUIBB COMPANY-15656473

PATIENT
  Age: 63 Year
  Sex: Male
  Weight: 80 kg

DRUGS (7)
  1. IPILIMUMAB [Suspect]
     Indication: MALIGNANT MELANOMA
     Dosage: VIAL NO:249908-249912, 250091-2550045, 254355-254359. 2ND DOSE 15-FEB-2011, 3RD DOSE 11-MAR-2011
     Route: 042
     Dates: start: 20110125, end: 20110311
  2. ACETAMINOPHEN W/ CODEINE [Concomitant]
     Dates: start: 20110307, end: 20110402
  3. FUROSEMIDE [Concomitant]
     Dates: start: 20110328, end: 20110402
  4. DIGOXINE [Concomitant]
     Dates: start: 20110328, end: 20110402
  5. IVABRADINE [Concomitant]
     Dates: start: 20110328, end: 20110402
  6. PREDNISONE [Concomitant]
     Dates: start: 20110328, end: 20110402
  7. BISOPROLOL [Concomitant]
     Dates: start: 20110125, end: 20110402

REACTIONS (1)
  - MULTI-ORGAN FAILURE [None]
